FAERS Safety Report 11776514 (Version 1)
Quarter: 2015Q4

REPORT INFORMATION
  Report Type: Spontaneous
  Country: US (occurrence: None)
  Receive Date: 20151123
  Receipt Date: 20151123
  Transmission Date: 20160304
  Serious: No
  Sender: FDA-Public Use
  Company Number: None

PATIENT
  Age: 31 Year
  Sex: Male

DRUGS (1)
  1. NAPROXEN 500MG CAMBER PHARMACEUTICAL [Suspect]
     Active Substance: NAPROXEN
     Route: 048
     Dates: start: 20151020, end: 20151118

REACTIONS (2)
  - Erythema [None]
  - Blister [None]

NARRATIVE: CASE EVENT DATE: 20151120
